FAERS Safety Report 9192345 (Version 1)
Quarter: 2013Q1

REPORT INFORMATION
  Report Type: Spontaneous
  Country: US (occurrence: US)
  Receive Date: 20130327
  Receipt Date: 20130327
  Transmission Date: 20140127
  Serious: Yes (Other)
  Sender: FDA-Public Use
  Company Number: US-JNJFOC-20130312925

PATIENT
  Sex: 0

DRUGS (1)
  1. STELARA [Suspect]
     Indication: PSORIASIS
     Dosage: 1ST INJECTION
     Route: 058

REACTIONS (2)
  - Hepatitis C antibody positive [Unknown]
  - Hepatic enzyme increased [Unknown]
